FAERS Safety Report 20009421 (Version 1)
Quarter: 2021Q4

REPORT INFORMATION
  Report Type: Spontaneous
  Country: US (occurrence: US)
  Receive Date: 20211028
  Receipt Date: 20211028
  Transmission Date: 20220303
  Serious: No
  Sender: FDA-Public Use
  Company Number: None

PATIENT
  Sex: Female

DRUGS (1)
  1. AMBRISENTAN [Suspect]
     Active Substance: AMBRISENTAN

REACTIONS (5)
  - Fatigue [None]
  - Neoplasm malignant [None]
  - Multiple allergies [None]
  - Dyspnoea exertional [None]
  - Gastrointestinal disorder [None]
